FAERS Safety Report 8857980 (Version 1)
Quarter: 2012Q4

REPORT INFORMATION
  Report Type: 
  Country: US (occurrence: US)
  Receive Date: 20121024
  Receipt Date: 20121024
  Transmission Date: 20130627
  Serious: Yes (Other)
  Sender: FDA-Public Use
  Company Number: US-AMGEN-USASP2012004299

PATIENT
  Age: 59 Year
  Sex: Female
  Weight: 70.3 kg

DRUGS (20)
  1. ENBREL [Suspect]
     Indication: PRODUCT USED FOR UNKNOWN INDICATION
     Dosage: 50 mg, qwk
     Route: 058
  2. PLAQUENIL                          /00072602/ [Concomitant]
     Dosage: 200 mg, UNK
     Route: 048
  3. CELEBREX [Concomitant]
     Dosage: 50 mg, UNK
     Route: 048
  4. ALTACE [Concomitant]
     Dosage: 2.5 mg, UNK
     Route: 048
  5. LEVOXYL [Concomitant]
     Dosage: 112 mug, UNK
     Route: 048
  6. EVISTA [Concomitant]
     Dosage: 60 mg, UNK
     Route: 048
  7. LUNESTA [Concomitant]
     Dosage: 1 mg, UNK
     Route: 048
  8. VITAMIN D 2000 [Concomitant]
     Dosage: UNK
     Route: 048
  9. LOVAZA [Concomitant]
     Dosage: 1 g, UNK
     Route: 048
  10. MIRALAX                            /00754501/ [Concomitant]
     Dosage: UNK
     Route: 048
  11. CYMBALTA [Concomitant]
     Dosage: 20 mg, UNK
     Route: 048
  12. PRILOSEC                           /00661201/ [Concomitant]
     Dosage: 10 mg, UNK
     Route: 048
  13. VITAMIN B12                        /00056201/ [Concomitant]
     Dosage: 1000 mug, UNK
     Route: 058
  14. PERCOCET                           /00446701/ [Concomitant]
     Dosage: UNK
     Route: 048
  15. MAGNESIUM [Concomitant]
     Dosage: 30 mg, UNK
     Route: 048
  16. CALCIUM [Concomitant]
     Dosage: 1040 mg, UNK
     Route: 048
  17. ASPIRIN LOW [Concomitant]
     Dosage: 81 mg, UNK
     Route: 048
  18. IRON [Concomitant]
     Dosage: 18 mg, UNK
     Route: 048
  19. VITAMIN E                          /00110501/ [Concomitant]
     Dosage: UNK mg, UNK
     Route: 048
  20. COLACE [Concomitant]
     Dosage: 50 mg, UNK
     Route: 048

REACTIONS (1)
  - Lyme disease [Unknown]
